FAERS Safety Report 9361262 (Version 3)
Quarter: 2013Q4

REPORT INFORMATION
  Report Type: Report from Study
  Country: JP (occurrence: JP)
  Receive Date: 20130621
  Receipt Date: 20131203
  Transmission Date: 20140711
  Serious: Yes (Other)
  Sender: FDA-Public Use
  Company Number: JP-VERTEX PHARMACEUTICALS INC-2013-007219

PATIENT
  Age: 50 Year
  Sex: Female

DRUGS (7)
  1. VX-950 (TELAPREVIR) [Suspect]
     Indication: CHRONIC HEPATITIS C
     Dosage: 1500 MG, QD
     Route: 048
     Dates: start: 20120215, end: 20120306
  2. PEGINTRON [Suspect]
     Indication: CHRONIC HEPATITIS C
     Dosage: 1.3 ?G/KG, QW
     Route: 058
     Dates: start: 20120215, end: 20120222
  3. PEGINTRON [Suspect]
     Dosage: 0.64 ?G/KG, QW
     Route: 058
     Dates: start: 20120229, end: 20120229
  4. PEGASYS [Suspect]
     Indication: CHRONIC HEPATITIS C
     Dosage: 180 ?G, QD
     Route: 058
     Dates: start: 20120702, end: 20120702
  5. PEGASYS [Suspect]
     Dosage: 90 ?G, QD, PRN, ONCE A WEEK
     Route: 058
     Dates: start: 20120711, end: 20120801
  6. REBETOL [Suspect]
     Indication: CHRONIC HEPATITIS C
     Dosage: 400 MG, QD
     Route: 048
     Dates: start: 20120215, end: 20120306
  7. URSO [Concomitant]
     Dosage: 600 MG, QD
     Route: 048
     Dates: start: 20120409

REACTIONS (1)
  - White blood cell count decreased [Recovered/Resolved]
